FAERS Safety Report 7495278-4 (Version None)
Quarter: 2011Q2

REPORT INFORMATION
  Report Type: 
  Country: None (occurrence: None)
  Receive Date: 20110523
  Receipt Date: 20110516
  Transmission Date: 20111010
  Serious: Yes (Other)
  Sender: FDA-Public Use
  Company Number: IT-BRISTOL-MYERS SQUIBB COMPANY-15760655

PATIENT
  Age: 64 Year
  Sex: Male

DRUGS (4)
  1. FOLIC ACID [Suspect]
     Indication: HEPATIC CANCER METASTATIC
     Dates: start: 20110117
  2. ERBITUX [Suspect]
     Indication: HEPATIC CANCER METASTATIC
     Dosage: FORMULATION:5MG/ML
     Dates: start: 20110117
  3. IRINOTECAN HYDROCHLORIDE [Suspect]
     Indication: HEPATIC CANCER METASTATIC
     Dates: start: 20110117
  4. FLUOROURACIL [Suspect]
     Indication: HEPATIC CANCER METASTATIC
     Dates: start: 20110117

REACTIONS (3)
  - VENTRICULAR EXTRASYSTOLES [None]
  - RASH [None]
  - SUPRAVENTRICULAR EXTRASYSTOLES [None]
